FAERS Safety Report 4771804-0 (Version None)
Quarter: 2005Q3

REPORT INFORMATION
  Report Type: 
  Country: None (occurrence: None)
  Receive Date: 20050916
  Receipt Date: 20050907
  Transmission Date: 20060218
  Serious: Yes (Death)
  Sender: FDA-Public Use
  Company Number: US-JNJFOC-20050901921

PATIENT
  Age: 52 Year
  Sex: Male

DRUGS (4)
  1. ACETAMINOPHEN/OXYCODONE [Suspect]
     Indication: DRUG USE FOR UNKNOWN INDICATION
     Route: 048
  2. ACETAMINOPHEN/CODEINE [Suspect]
     Indication: DRUG USE FOR UNKNOWN INDICATION
     Route: 048
  3. DIAZEPAM [Concomitant]
     Route: 048
  4. DIPYRIDAMOLE [Concomitant]
     Route: 048

REACTIONS (5)
  - COMA [None]
  - DIALYSIS [None]
  - DRUG SCREEN POSITIVE [None]
  - DRUG TOXICITY [None]
  - LOSS OF CONSCIOUSNESS [None]
